FAERS Safety Report 9037798 (Version 2)
Quarter: 2013Q2

REPORT INFORMATION
  Report Type: Spontaneous
  Country: US (occurrence: US)
  Receive Date: 20130129
  Receipt Date: 20130409
  Transmission Date: 20140414
  Serious: Yes (Hospitalization)
  Sender: FDA-Public Use
  Company Number: US-009507513-1301USA012341

PATIENT
  Age: 50 Year
  Sex: Female

DRUGS (3)
  1. VICTRELIS [Suspect]
     Indication: HEPATITIS C
     Route: 048
  2. REBETOL [Suspect]
     Route: 048
  3. PEGINTRON [Suspect]

REACTIONS (1)
  - Anaemia [Recovered/Resolved]
